FAERS Safety Report 8905260 (Version 35)
Quarter: 2019Q3

REPORT INFORMATION
  Report Type: Report from Study
  Country: CA (occurrence: CA)
  Receive Date: 20121112
  Receipt Date: 20190923
  Transmission Date: 20191005
  Serious: Yes (Hospitalization, Other)
  Sender: FDA-Public Use
  Company Number: PHHY2012CA103229

PATIENT
  Age: 74 Year
  Sex: Female

DRUGS (10)
  1. PMS-ONDANSETRON [Concomitant]
     Indication: PRODUCT USED FOR UNKNOWN INDICATION
     Dosage: 8 MG, QD
     Route: 048
  2. SUTENT [Suspect]
     Active Substance: SUNITINIB MALATE
     Indication: PRODUCT USED FOR UNKNOWN INDICATION
     Dosage: 12.5 MG, UNK
     Route: 065
  3. JAMP VITAMIN B12 [Concomitant]
     Indication: PRODUCT USED FOR UNKNOWN INDICATION
     Dosage: 1200 UG (DIE), QD
     Route: 065
  4. SANDOSTATIN LAR DEPOT [Suspect]
     Active Substance: OCTREOTIDE ACETATE
     Indication: PANCREATIC NEUROENDOCRINE TUMOUR METASTATIC
     Dosage: 30 MG, QMO
     Route: 030
     Dates: start: 20121012
  5. SANDOSTATIN LAR DEPOT [Suspect]
     Active Substance: OCTREOTIDE ACETATE
     Dosage: 30 MG, QMO
     Route: 030
     Dates: start: 20190205
  6. TEMOZOLOMIDE TARO [Concomitant]
     Indication: PRODUCT USED FOR UNKNOWN INDICATION
     Dosage: 3 DF, QD
     Route: 048
  7. SANDOSTATIN LAR DEPOT [Suspect]
     Active Substance: OCTREOTIDE ACETATE
     Dosage: 30 MG, QMO
     Route: 030
     Dates: start: 20141113
  8. SANDOSTATIN [Suspect]
     Active Substance: OCTREOTIDE ACETATE
     Indication: PANCREATIC NEUROENDOCRINE TUMOUR METASTATIC
     Dosage: UNK UG, TID FOR ONE WEEK
     Route: 058
     Dates: start: 20121005, end: 20121012
  9. TEVA CAPECITABINE [Concomitant]
     Indication: PRODUCT USED FOR UNKNOWN INDICATION
     Dosage: 2 DF, BID
     Route: 048
  10. TEVA CAPECITABINE [Concomitant]
     Dosage: 150 MG, BID (150 MG, 1 TABS 2 TIMES A DAY)
     Route: 048

REACTIONS (33)
  - Balance disorder [Unknown]
  - Gait disturbance [Unknown]
  - Movement disorder [Unknown]
  - Hypoglycaemia [Unknown]
  - Injection site pain [Recovered/Resolved]
  - Needle issue [Unknown]
  - Herpes zoster [Recovering/Resolving]
  - Pain in extremity [Unknown]
  - Pain [Recovering/Resolving]
  - Sensory loss [Unknown]
  - Product quality issue [Unknown]
  - Urinary tract infection [Unknown]
  - Blood pressure systolic increased [Unknown]
  - Nasopharyngitis [Unknown]
  - Rhinorrhoea [Unknown]
  - Musculoskeletal pain [Recovered/Resolved]
  - Anaemia [Unknown]
  - Dizziness [Unknown]
  - Fall [Unknown]
  - Body temperature decreased [Unknown]
  - Hypoaesthesia [Unknown]
  - Blood pressure diastolic decreased [Unknown]
  - Gait inability [Unknown]
  - Injection site pain [Unknown]
  - Malaise [Unknown]
  - Stress [Unknown]
  - Fatigue [Unknown]
  - Arthralgia [Unknown]
  - Back pain [Unknown]
  - Hypotension [Unknown]
  - Nausea [Unknown]
  - Diabetes mellitus [Unknown]
  - Pallor [Unknown]

NARRATIVE: CASE EVENT DATE: 20121105
